FAERS Safety Report 10144039 (Version 1)
Quarter: 2014Q2

REPORT INFORMATION
  Report Type: Spontaneous
  Country: US (occurrence: US)
  Receive Date: 20140430
  Receipt Date: 20140430
  Transmission Date: 20141212
  Serious: No
  Sender: FDA-Public Use
  Company Number: US-GILEAD-2014-0100751

PATIENT
  Age: 48 Year
  Sex: Female

DRUGS (4)
  1. SOVALDI [Suspect]
     Indication: HEPATITIS C
     Dosage: 400 MG, QD
     Route: 048
     Dates: start: 20140326
  2. RIBAVIRIN [Suspect]
     Indication: HEPATITIS C
     Dosage: 600MG AM 400 MG PM
     Route: 048
     Dates: start: 20140326
  3. PROMETHAZINE [Concomitant]
  4. ONDANSETRON [Concomitant]

REACTIONS (4)
  - Headache [Unknown]
  - Anaemia [Unknown]
  - Arthralgia [Unknown]
  - Fatigue [Unknown]
